FAERS Safety Report 6140195-5 (Version None)
Quarter: 2009Q2

REPORT INFORMATION
  Report Type: 
  Country: None (occurrence: None)
  Receive Date: 20090401
  Receipt Date: 20090323
  Transmission Date: 20091009
  Serious: No
  Sender: FDA-Public Use
  Company Number: US-B.I. PHARMACEUTICALS,INC./RIDGEFIELD-2009-BP-03683BP

PATIENT
  Sex: Female

DRUGS (3)
  1. COMBIVENT [Suspect]
     Indication: CHRONIC OBSTRUCTIVE PULMONARY DISEASE
     Route: 055
     Dates: start: 20090101
  2. PROZAC [Concomitant]
     Indication: ANXIETY
  3. THYROID MEDICATION [Concomitant]
     Indication: HYPOTHYROIDISM

REACTIONS (3)
  - MEDICATION ERROR [None]
  - PAIN IN EXTREMITY [None]
  - POSTURE ABNORMAL [None]
